FAERS Safety Report 4718989-X (Version None)
Quarter: 2005Q3

REPORT INFORMATION
  Report Type: 
  Country: None (occurrence: None)
  Receive Date: 20050719
  Receipt Date: 20050704
  Transmission Date: 20060218
  Serious: Yes (Hospitalization)
  Sender: FDA-Public Use
  Company Number: JP_050606882

PATIENT
  Age: 63 Year
  Sex: Female

DRUGS (4)
  1. EVISTA [Suspect]
     Indication: OSTEOPOROSIS
     Dosage: 60 MG/1 DAY
     Route: 048
     Dates: start: 20050401, end: 20050415
  2. SAYMOTIN                    (KALLIDINOGENASE) [Concomitant]
  3. MECOBALAMIN [Concomitant]
  4. CALCITRIOL [Concomitant]

REACTIONS (1)
  - BLOOD TRIGLYCERIDES INCREASED [None]
